FAERS Safety Report 7705771-4 (Version None)
Quarter: 2011Q3

REPORT INFORMATION
  Report Type: 
  Country: None (occurrence: None)
  Receive Date: 20110824
  Receipt Date: 20110824
  Transmission Date: 20111222
  Serious: Yes (Life-Threatening, Hospitalization)
  Sender: FDA-Public Use
  Company Number: None

PATIENT
  Age: 53 Year
  Sex: Male
  Weight: 111 kg

DRUGS (1)
  1. TORADOL [Suspect]

REACTIONS (7)
  - ERYTHEMA [None]
  - CARDIAC ARREST [None]
  - MULTI-ORGAN FAILURE [None]
  - DYSPNOEA [None]
  - ELECTROCARDIOGRAM ST SEGMENT ELEVATION [None]
  - HYPOTENSION [None]
  - RASH MACULAR [None]
